FAERS Safety Report 12668032 (Version 1)
Quarter: 2016Q3

REPORT INFORMATION
  Report Type: Spontaneous
  Country: GB (occurrence: GB)
  Receive Date: 20160819
  Receipt Date: 20160819
  Transmission Date: 20161109
  Serious: Yes (Disabling)
  Sender: FDA-Public Use
  Company Number: GB-ELI_LILLY_AND_COMPANY-GB201608007178

PATIENT
  Age: 18 Year
  Sex: Female
  Weight: 79.82 kg

DRUGS (4)
  1. PROGESTERONE. [Concomitant]
     Active Substance: PROGESTERONE
     Indication: ORAL CONTRACEPTION
     Dosage: UNK UNK, UNKNOWN
     Route: 065
  2. FLUOXETINE HYDROCHLORIDE. [Suspect]
     Active Substance: FLUOXETINE HYDROCHLORIDE
     Indication: DYSKINESIA
     Dosage: 20 MG, UNKNOWN
     Route: 048
     Dates: end: 20160711
  3. FLUOXETINE HYDROCHLORIDE. [Suspect]
     Active Substance: FLUOXETINE HYDROCHLORIDE
     Dosage: 40 MG, UNKNOWN
     Route: 048
     Dates: start: 20160711, end: 20160722
  4. MIGRALEVE                          /01325801/ [Concomitant]
     Active Substance: ACETAMINOPHEN\BUCLIZINE HYDROCHLORIDE\CODEINE
     Indication: PRODUCT USED FOR UNKNOWN INDICATION
     Dosage: UNK UNK, UNKNOWN
     Route: 065

REACTIONS (8)
  - Photosensitivity reaction [Unknown]
  - Tonic clonic movements [Unknown]
  - Head banging [Unknown]
  - Dyskinesia [Not Recovered/Not Resolved]
  - Tremor [Unknown]
  - Fatigue [Unknown]
  - Myalgia [Unknown]
  - Chills [Unknown]

NARRATIVE: CASE EVENT DATE: 20160719
